FAERS Safety Report 9289118 (Version 1)
Quarter: 2013Q2

REPORT INFORMATION
  Report Type: Spontaneous
  Country: US (occurrence: None)
  Receive Date: 20130509
  Receipt Date: 20130509
  Transmission Date: 20140414
  Serious: Yes (Other)
  Sender: FDA-Public Use
  Company Number: ACO_35788_2013

PATIENT
  Age: 60 Year
  Sex: Male
  Weight: 68 kg

DRUGS (9)
  1. AMPYRA (DALFAMPRIDINE) TABLET, 10MG [Suspect]
     Indication: GAIT DISTURBANCE
     Route: 048
     Dates: start: 2012, end: 201301
  2. PREDNISONE (PREDNISONE) [Concomitant]
  3. AMLODIPINE (AMLODIPINE BESILATE) [Concomitant]
  4. LISINOPRIL (LISINOPRIL [Concomitant]
  5. VITAMIN C [Concomitant]
  6. FOLIC ACID (FOLIC ACID) [Concomitant]
  7. CALCIUM (CALCIUM GLUCONATE, CALCIUM SACCHARATE) [Concomitant]
  8. RECLAST (ZOLEDRONIC ACID) [Concomitant]
  9. FISH OIL (FISH OIL) [Concomitant]

REACTIONS (8)
  - Renal artery stenosis [None]
  - Oedema peripheral [None]
  - Malaise [None]
  - Influenza like illness [None]
  - Asthenia [None]
  - Balance disorder [None]
  - Drug ineffective [None]
  - Dizziness [None]
